FAERS Safety Report 19052956 (Version 11)
Quarter: 2023Q2

REPORT INFORMATION
  Report Type: Other
  Country: ZA (occurrence: None)
  Receive Date: 20210324
  Receipt Date: 20230518
  Transmission Date: 20230722
  Serious: Yes (Hospitalization, Other)
  Sender: FDA-Public Use
  Company Number: ZA-ROCHE-2793696

PATIENT
  Sex: Male

DRUGS (15)
  1. ACTEMRA [Suspect]
     Active Substance: TOCILIZUMAB
     Indication: Encephalitis autoimmune
     Dosage: 162 MG WEEKLY X 4 MONTHS REPEAT X 6
     Route: 058
  2. ACTEMRA [Suspect]
     Active Substance: TOCILIZUMAB
     Dosage: SOMETIMES USES ONLY EVERY 3 WEEKS
     Route: 058
     Dates: start: 20210112
  3. MABTHERA [Suspect]
     Active Substance: RITUXIMAB
     Indication: Juvenile idiopathic arthritis
     Dosage: NOT SURE HOW PATIENT USED THE MABTHERA
     Route: 041
  4. MABTHERA [Suspect]
     Active Substance: RITUXIMAB
     Indication: Encephalitis autoimmune
     Dosage: 6-MONTHLY (REST OF DOSAGE IS UNKNOWN)
     Route: 041
  5. POLYGAM [Suspect]
     Active Substance: HUMAN IMMUNOGLOBULIN G
     Indication: Product used for unknown indication
     Dosage: 12GM 50 ML, 1GM 50 ML
     Route: 042
  6. TOFACITINIB [Suspect]
     Active Substance: TOFACITINIB
     Indication: Product used for unknown indication
     Route: 048
  7. VITAMINS [Concomitant]
     Active Substance: VITAMINS
  8. XELJANZ [Concomitant]
     Active Substance: TOFACITINIB CITRATE
  9. EPILIM [Concomitant]
     Active Substance: VALPROATE SODIUM
  10. GABAPENTIN [Concomitant]
     Active Substance: GABAPENTIN
  11. PAX (SOUTH AFRICA) [Concomitant]
  12. TEGRETOL [Concomitant]
     Active Substance: CARBAMAZEPINE
     Dosage: 100MG/5 ML
  13. TOPAMAX [Concomitant]
     Active Substance: TOPIRAMATE
  14. CLOBAZAM [Concomitant]
     Active Substance: CLOBAZAM
  15. VIMPAT [Concomitant]
     Active Substance: LACOSAMIDE

REACTIONS (7)
  - Pseudomonas infection [Unknown]
  - Immunosuppression [Unknown]
  - Off label use [Unknown]
  - White blood cell count decreased [Unknown]
  - Oral disorder [Unknown]
  - Cognitive disorder [Unknown]
  - Antibody test abnormal [Unknown]

NARRATIVE: CASE EVENT DATE: 20210311
